FAERS Safety Report 13823537 (Version 2)
Quarter: 2017Q3

REPORT INFORMATION
  Report Type: Spontaneous
  Country: JP (occurrence: JP)
  Receive Date: 20170802
  Receipt Date: 20170822
  Transmission Date: 20171127
  Serious: Yes (Other)
  Sender: FDA-Public Use
  Company Number: JP-RECORDATI RARE DISEASES-JP-R13005-17-00151

PATIENT
  Sex: Male
  Weight: .73 kg

DRUGS (3)
  1. INDOCIN [Suspect]
     Active Substance: INDOMETHACIN
     Indication: CIRCULATORY COLLAPSE
     Route: 065
  2. STEROID [Concomitant]
     Active Substance: UNSPECIFIED INGREDIENT
     Indication: INFECTION
     Route: 065
  3. GAMMA GLOBULIN [Concomitant]
     Active Substance: IMMUNE GLOBULIN NOS
     Indication: INFECTION
     Route: 065

REACTIONS (3)
  - Off label use [Unknown]
  - Respiratory tract haemorrhage [Unknown]
  - Gastric perforation [Unknown]
